FAERS Safety Report 15258806 (Version 1)
Quarter: 2018Q3

REPORT INFORMATION
  Report Type: Spontaneous
  Country: US (occurrence: US)
  Receive Date: 20180809
  Receipt Date: 20180809
  Transmission Date: 20181010
  Serious: No
  Sender: FDA-Public Use
  Company Number: US-GLENMARK PHARMACEUTICALS-2018GMK035937

PATIENT

DRUGS (1)
  1. MOMETASONE FUROATE CREAM USP [Suspect]
     Active Substance: MOMETASONE FUROATE
     Indication: SKIN DISORDER
     Dosage: UNK
     Route: 061
     Dates: end: 20180602

REACTIONS (6)
  - Pruritus [Not Recovered/Not Resolved]
  - Feeling abnormal [Unknown]
  - Product administered at inappropriate site [Unknown]
  - Malaise [Unknown]
  - Burning sensation [Recovered/Resolved]
  - Dysgeusia [Recovered/Resolved]
